FAERS Safety Report 11687946 (Version 2)
Quarter: 2016Q1

REPORT INFORMATION
  Report Type: Spontaneous
  Country: US (occurrence: US)
  Receive Date: 20151030
  Receipt Date: 20160202
  Transmission Date: 20160525
  Serious: Yes (Hospitalization)
  Sender: FDA-Public Use
  Company Number: US-LUNDBECK-DKLU2005792

PATIENT
  Age: 1 Year
  Sex: Male
  Weight: 10 kg

DRUGS (3)
  1. SABRIL [Suspect]
     Active Substance: VIGABATRIN
     Indication: SPEECH DISORDER DEVELOPMENTAL
     Route: 048
     Dates: start: 20151019
  2. SABRIL [Suspect]
     Active Substance: VIGABATRIN
     Indication: ELECTROENCEPHALOGRAM ABNORMAL
     Route: 048
  3. SABRIL [Suspect]
     Active Substance: VIGABATRIN
     Indication: INFANTILE SPASMS
     Route: 048
     Dates: start: 20150828

REACTIONS (5)
  - Irritability [Unknown]
  - Gait disturbance [Recovering/Resolving]
  - Language disorder [Unknown]
  - Pyrexia [Unknown]
  - Seizure [Recovering/Resolving]

NARRATIVE: CASE EVENT DATE: 201510
